FAERS Safety Report 5979668-4 (Version None)
Quarter: 2008Q4

REPORT INFORMATION
  Report Type: 
  Country: None (occurrence: None)
  Receive Date: 20081204
  Receipt Date: 20081120
  Transmission Date: 20090506
  Serious: Yes (Hospitalization)
  Sender: FDA-Public Use
  Company Number: HK-GILEAD-2008-0019128

PATIENT
  Sex: Female
  Weight: 43.7 kg

DRUGS (2)
  1. EMTRICITABINE [Suspect]
     Indication: HEPATITIS B
     Route: 048
     Dates: start: 20080305
  2. TENOFOVIR DISOPROXIL FUMARATE [Suspect]
     Indication: HEPATITIS B
     Route: 048
     Dates: start: 20080305

REACTIONS (1)
  - ABORTION SPONTANEOUS [None]
